FAERS Safety Report 14695594 (Version 1)
Quarter: 2018Q1

REPORT INFORMATION
  Report Type: Spontaneous
  Country: US (occurrence: US)
  Receive Date: 20180329
  Receipt Date: 20180329
  Transmission Date: 20180509
  Serious: No
  Sender: FDA-Public Use
  Company Number: US-BAYER-2018-060053

PATIENT
  Sex: Male

DRUGS (1)
  1. LOTRIMIN ULTRA ANTIFUNGAL [Suspect]
     Active Substance: BUTENAFINE HYDROCHLORIDE
     Indication: TINEA PEDIS
     Dosage: UNK
     Route: 061
     Dates: start: 20180327

REACTIONS (3)
  - Incorrect route of drug administration [Unknown]
  - Product administered at inappropriate site [None]
  - Accidental exposure to product [None]

NARRATIVE: CASE EVENT DATE: 20180327
